FAERS Safety Report 21723811 (Version 1)
Quarter: 2022Q4

REPORT INFORMATION
  Report Type: Report from Study
  Country: BE (occurrence: BE)
  Receive Date: 20221213
  Receipt Date: 20221213
  Transmission Date: 20230113
  Serious: Yes (Other)
  Sender: FDA-Public Use
  Company Number: BE-ABBVIE-4233675

PATIENT
  Sex: Female
  Weight: 54 kg

DRUGS (8)
  1. CARBIDOPA\LEVODOPA [Suspect]
     Active Substance: CARBIDOPA\LEVODOPA
     Indication: Parkinson^s disease
     Dosage: MD 1.5 ML, CD 2.0 ML/H, ED 1.0 ML, DURING 16 HRS
     Route: 050
     Dates: start: 20220610, end: 20220928
  2. CARBIDOPA\LEVODOPA [Suspect]
     Active Substance: CARBIDOPA\LEVODOPA
     Dosage: MD 0.5 ML, CD 2.0 ML/H, ED 1.0 ML, DURING 16 HRS
     Route: 050
     Dates: start: 20221004, end: 20221004
  3. CARBIDOPA\LEVODOPA [Suspect]
     Active Substance: CARBIDOPA\LEVODOPA
     Dosage: MD 1.5 ML, CD 2.0 ML/H, ED 1.0 ML, DURING 16 HRS
     Route: 050
     Dates: start: 20220928, end: 20221004
  4. CARBIDOPA\LEVODOPA [Suspect]
     Active Substance: CARBIDOPA\LEVODOPA
     Dosage: MD 1.0 ML, CD 1.9 ML/H, ED 1.0 ML, DURING 16 HRS
     Route: 050
     Dates: start: 20221004, end: 20221007
  5. CARBIDOPA\LEVODOPA [Suspect]
     Active Substance: CARBIDOPA\LEVODOPA
     Dosage: MD 1.0 ML, CD 1.9 ML/H, ED 1.0 ML, DURING 16 HRS
     Route: 050
     Dates: start: 20221007
  6. BENSERAZIDE\LEVODOPA [Concomitant]
     Active Substance: BENSERAZIDE\LEVODOPA
     Indication: Parkinson^s disease
     Dosage: FORM STRENGTH: 125 MG?FREQUENCY TEXT: AT 21H
  7. BENSERAZIDE\LEVODOPA [Concomitant]
     Active Substance: BENSERAZIDE\LEVODOPA
     Indication: Parkinson^s disease
     Dosage: TIME INTERVAL: 0.33333333 DAYS: 0.75 TABLET?FORM STRENGTH: 250
     Route: 048
  8. BENSERAZIDE\LEVODOPA [Concomitant]
     Active Substance: BENSERAZIDE\LEVODOPA
     Indication: Parkinson^s disease
     Dosage: TIME INTERVAL: 0.33333333 DAYS: 0.5 TABLET?FORM STRENGTH: 250
     Route: 048

REACTIONS (4)
  - Hiatus hernia [Unknown]
  - Pain [Unknown]
  - Gastric disorder [Unknown]
  - Dyspepsia [Unknown]
